FAERS Safety Report 14651427 (Version 3)
Quarter: 2018Q2

REPORT INFORMATION
  Report Type: Report from Study
  Country: None (occurrence: BE)
  Receive Date: 20180316
  Receipt Date: 20180519
  Transmission Date: 20180711
  Serious: Yes (Death, Hospitalization)
  Sender: FDA-Public Use
  Company Number: BE-ABBVIE-18K-013-2288580-00

PATIENT
  Age: 64 Year
  Sex: Male

DRUGS (6)
  1. DUODOPA [Suspect]
     Active Substance: CARBIDOPA\LEVODOPA
     Dosage: DOSES CONTINUOUSLY MONITORED AND ADAPTED
     Route: 050
     Dates: start: 20120815, end: 20180201
  2. STALEVO 150 [Concomitant]
     Dosage: FORM STRENGTH: 150MG/37.5MG/200MG?4 TIMES PER DAY AS RESCUE MEDICATION
  3. DUODOPA [Suspect]
     Active Substance: CARBIDOPA\LEVODOPA
     Dosage: MD= 4ML??CD= 3.1ML/HR DURING 16HRS ??ED= 1.8ML
     Route: 050
     Dates: start: 20180312
  4. DUODOPA [Suspect]
     Active Substance: CARBIDOPA\LEVODOPA
     Indication: PARKINSON^S DISEASE
     Dosage: MD=3ML??CD=5.3ML/HR DURING 16HRS ??ED=3ML??ND=4.9ML/HR DURING 8HRS
     Route: 050
     Dates: start: 20120813, end: 20120815
  5. DUODOPA [Suspect]
     Active Substance: CARBIDOPA\LEVODOPA
     Dosage: MD= 3ML??CD= 2.8ML/HR DURING 16HRS ??ED= 1.8ML
     Route: 050
     Dates: start: 20180201, end: 20180312
  6. STALEVO 150 [Concomitant]
     Indication: PARKINSON^S DISEASE
     Dosage: FORM STRENGTH: 150MG/37.5MG/200MG
     Route: 048

REACTIONS (6)
  - General physical health deterioration [Unknown]
  - Bezoar [Unknown]
  - Death [Fatal]
  - Device kink [Unknown]
  - Gait disturbance [Unknown]
  - Device breakage [Unknown]

NARRATIVE: CASE EVENT DATE: 201803
